FAERS Safety Report 7583174-3 (Version None)
Quarter: 2011Q2

REPORT INFORMATION
  Report Type: 
  Country: None (occurrence: None)
  Receive Date: 20110623
  Receipt Date: 20110616
  Transmission Date: 20111010
  Serious: Yes (Hospitalization)
  Sender: FDA-Public Use
  Company Number: 2010SP055022

PATIENT
  Age: 30 Year
  Sex: Female
  Weight: 98.8842 kg

DRUGS (1)
  1. NUVARING [Suspect]
     Indication: CONTRACEPTION
     Dates: start: 20080303, end: 20081014

REACTIONS (10)
  - LOBAR PNEUMONIA [None]
  - GENERAL PHYSICAL CONDITION ABNORMAL [None]
  - MULTIPLE INJURIES [None]
  - FIBRIN D DIMER INCREASED [None]
  - PLEURAL EFFUSION [None]
  - METRORRHAGIA [None]
  - PROTEIN C INCREASED [None]
  - PULMONARY EMBOLISM [None]
  - CARDIOMEGALY [None]
  - PROTEIN S DECREASED [None]
